FAERS Safety Report 6708436-0 (Version None)
Quarter: 2010Q2

REPORT INFORMATION
  Report Type: 
  Country: None (occurrence: None)
  Receive Date: 20100503
  Receipt Date: 20090617
  Transmission Date: 20101027
  Serious: No
  Sender: FDA-Public Use
  Company Number: US-ASTRAZENECA-2009UW15541

PATIENT
  Age: 78 Year
  Sex: Male
  Weight: 72.6 kg

DRUGS (2)
  1. NEXIUM [Suspect]
     Indication: GASTROOESOPHAGEAL REFLUX DISEASE
     Route: 048
     Dates: start: 20090101, end: 20090601
  2. NEXIUM [Suspect]
     Route: 048
     Dates: start: 20090610

REACTIONS (3)
  - AGEUSIA [None]
  - DYSPEPSIA [None]
  - ILL-DEFINED DISORDER [None]
